FAERS Safety Report 23107574 (Version 2)
Quarter: 2023Q4

REPORT INFORMATION
  Report Type: Spontaneous
  Country: DE (occurrence: None)
  Receive Date: 20231026
  Receipt Date: 20231101
  Transmission Date: 20240109
  Serious: No
  Sender: FDA-Public Use
  Company Number: DE-ROCHE-3446053

PATIENT
  Sex: Male

DRUGS (1)
  1. OCREVUS [Suspect]
     Active Substance: OCRELIZUMAB
     Indication: Relapsing-remitting multiple sclerosis
     Route: 065

REACTIONS (1)
  - Herpes virus infection [Unknown]
